FAERS Safety Report 8509282-8 (Version None)
Quarter: 2012Q3

REPORT INFORMATION
  Report Type: 
  Country: None (occurrence: None)
  Receive Date: 20120713
  Receipt Date: 20120704
  Transmission Date: 20120928
  Serious: Yes (Death, Hospitalization)
  Sender: FDA-Public Use
  Company Number: FR-CELGENEUS-056-21880-12050496

PATIENT
  Age: 85 Year
  Sex: Male

DRUGS (13)
  1. VERACOLATE [Concomitant]
     Route: 065
  2. CRESTOR [Concomitant]
     Route: 065
  3. LASIX [Concomitant]
     Route: 065
  4. MODOPAR [Concomitant]
     Route: 065
  5. CALCIT D3 [Concomitant]
     Route: 065
  6. LANTUS [Concomitant]
     Dosage: 6 DOSAGE FORMS
     Route: 065
  7. AMBER [Concomitant]
     Route: 065
  8. DEDROGYL [Concomitant]
     Route: 065
  9. REVLIMID [Suspect]
     Indication: MULTIPLE MYELOMA
     Route: 048
     Dates: end: 20120417
  10. NEXIUM [Concomitant]
     Route: 065
  11. ARANESP [Concomitant]
     Dosage: 40 GAMMA
     Route: 065
  12. REPAGLINIDE [Concomitant]
     Dosage: 16 DOSAGE FORMS
     Route: 065
  13. FERROUS SULFATE TAB [Concomitant]
     Route: 065

REACTIONS (1)
  - GENERAL PHYSICAL HEALTH DETERIORATION [None]
